FAERS Safety Report 5444964-6 (Version None)
Quarter: 2007Q3

REPORT INFORMATION
  Report Type: 
  Country: None (occurrence: None)
  Receive Date: 20070906
  Receipt Date: 20070904
  Transmission Date: 20080115
  Serious: Yes (Life-Threatening, Hospitalization)
  Sender: FDA-Public Use
  Company Number: PHBS2007BR14343

PATIENT
  Age: 13 Year
  Sex: Female
  Weight: 38 kg

DRUGS (4)
  1. CATAFLAM [Suspect]
     Indication: PHARYNGOLARYNGEAL PAIN
     Dosage: 30 DROPS/DAY
     Route: 048
     Dates: start: 20070807
  2. CATAFLAM [Suspect]
     Dosage: 30 DRP, TID
     Route: 048
     Dates: start: 20070808, end: 20070808
  3. DIPYRONE TAB [Concomitant]
     Indication: HYPERSENSITIVITY
  4. PESTICIDE [Suspect]

REACTIONS (6)
  - DRUG HYPERSENSITIVITY [None]
  - DYSPNOEA [None]
  - EXPOSURE TO TOXIC AGENT [None]
  - EYE SWELLING [None]
  - LIP SWELLING [None]
  - PHARYNGEAL OEDEMA [None]
